FAERS Safety Report 7658347-1 (Version None)
Quarter: 2011Q3

REPORT INFORMATION
  Report Type: 
  Country: None (occurrence: None)
  Receive Date: 20110802
  Receipt Date: 20110720
  Transmission Date: 20111222
  Serious: Yes (Other)
  Sender: FDA-Public Use
  Company Number: 2011AP001569

PATIENT
  Age: 63 Year
  Sex: Male

DRUGS (3)
  1. PREDNISONE [Concomitant]
  2. CYCLOSPORINE [Suspect]
     Indication: IMMUNOSUPPRESSION
  3. MYCOPHENOLATE MOFETIL [Concomitant]

REACTIONS (2)
  - SEBACEOUS CARCINOMA [None]
  - SEBACEOUS ADENOMA [None]
